FAERS Safety Report 8242226-5 (Version None)
Quarter: 2012Q1

REPORT INFORMATION
  Report Type: 
  Country: None (occurrence: None)
  Receive Date: 20120329
  Receipt Date: 20120323
  Transmission Date: 20120608
  Serious: Yes (Other)
  Sender: FDA-Public Use
  Company Number: US-AMGEN-USASP2012019419

PATIENT
  Age: 61 Year
  Sex: Male

DRUGS (17)
  1. SPIRIVA [Concomitant]
     Dosage: UNK
  2. DOXAZOSIN MESYLATE [Concomitant]
     Dosage: UNK
  3. LYRICA [Concomitant]
     Dosage: UNK
  4. RANITIDINE [Concomitant]
     Dosage: UNK
  5. LEXAPRO [Concomitant]
     Dosage: UNK
  6. DIOVAN [Concomitant]
     Dosage: UNK
  7. TRILIPIX [Concomitant]
  8. PROCRIT [Suspect]
     Indication: ANAEMIA
     Dosage: 20000 IU, QWK
  9. LANTUS [Concomitant]
     Dosage: UNK
  10. METFORMIN HCL [Concomitant]
     Dosage: UNK
  11. ASPIRIN [Concomitant]
     Dosage: UNK
  12. EXJADE [Concomitant]
     Dosage: UNK
     Dates: start: 20120301
  13. INTERFERON [Concomitant]
     Indication: HEPATITIS C
     Dosage: UNK
  14. TRAMADOL HCL [Concomitant]
  15. TRAZODONE HCL [Concomitant]
  16. PROAIR HFA [Concomitant]
     Dosage: UNK
  17. LISINOPRIL [Concomitant]

REACTIONS (2)
  - HYPOCHROMIC ANAEMIA [None]
  - APLASIA PURE RED CELL [None]
